FAERS Safety Report 12823196 (Version 3)
Quarter: 2016Q4

REPORT INFORMATION
  Report Type: Spontaneous
  Country: FR (occurrence: FR)
  Receive Date: 20161007
  Receipt Date: 20161111
  Transmission Date: 20170207
  Serious: Yes (Hospitalization, Other)
  Sender: FDA-Public Use
  Company Number: FR-ROCHE-1838621

PATIENT
  Age: 29 Year
  Sex: Female
  Weight: 56 kg

DRUGS (8)
  1. LUCENTIS [Suspect]
     Active Substance: RANIBIZUMAB
     Dosage: RIGHT AND LEFT EYE
     Route: 031
     Dates: start: 201510
  2. ENOXAPARIN [Concomitant]
     Active Substance: ENOXAPARIN
     Indication: PRODUCT USED FOR UNKNOWN INDICATION
     Route: 065
  3. LUCENTIS [Suspect]
     Active Substance: RANIBIZUMAB
     Indication: DIABETIC RETINAL OEDEMA
     Dosage: RIGHT AND LEFT EYE
     Route: 031
     Dates: start: 201509
  4. LABETALOL [Concomitant]
     Active Substance: LABETALOL\LABETALOL HYDROCHLORIDE
     Indication: PRODUCT USED FOR UNKNOWN INDICATION
     Route: 065
  5. HUMALOG [Concomitant]
     Active Substance: INSULIN LISPRO
     Indication: DIABETES MELLITUS
     Dosage: 24 IU, QD(10-06-08 )
     Route: 058
     Dates: start: 201511
  6. OZURDEX [Concomitant]
     Active Substance: DEXAMETHASONE
     Indication: PRODUCT USED FOR UNKNOWN INDICATION
     Route: 065
  7. LANTUS [Concomitant]
     Active Substance: INSULIN GLARGINE
     Indication: DIABETES MELLITUS
     Dosage: 16 IU, QD
     Route: 058
     Dates: start: 201511
  8. LUCENTIS [Suspect]
     Active Substance: RANIBIZUMAB
     Dosage: RIGHT EYE
     Route: 031
     Dates: start: 20151113, end: 20151113

REACTIONS (8)
  - Malaise [Unknown]
  - Exposure during pregnancy [Unknown]
  - Hypoglycaemia [Unknown]
  - Iron deficiency [Unknown]
  - Vitamin B12 deficiency [Unknown]
  - Anaemia [Unknown]
  - Acute kidney injury [Unknown]
  - Premature delivery [Unknown]

NARRATIVE: CASE EVENT DATE: 201510
